FAERS Safety Report 8573458-4 (Version None)
Quarter: 2012Q3

REPORT INFORMATION
  Report Type: 
  Country: None (occurrence: None)
  Receive Date: 20120806
  Receipt Date: 20120725
  Transmission Date: 20120928
  Serious: Yes (Hospitalization)
  Sender: FDA-Public Use
  Company Number: DE-UCBSA-050693

PATIENT
  Age: 71 Year
  Sex: Female
  Weight: 102 kg

DRUGS (20)
  1. METHOTREXATE [Suspect]
     Dates: start: 20030601
  2. OLMESARTAN MEDOXOMIL [Concomitant]
     Dosage: 20/25 MG
  3. BISOPROLOL FUMARATE [Concomitant]
     Indication: HYPERTENSION
  4. CIMZIA [Suspect]
     Indication: RHEUMATOID ARTHRITIS
     Route: 058
     Dates: start: 20100601
  5. LEFLUNOMIDE [Concomitant]
     Dates: start: 20010501, end: 20070501
  6. METHOTREXATE [Suspect]
  7. PREDNISOLONE [Concomitant]
  8. PANTOPRAZOLE [Concomitant]
  9. FLECAINIDE ACETATE [Concomitant]
  10. METHOTREXATE [Suspect]
     Indication: RHEUMATOID ARTHRITIS
     Dosage: 15,0 (UNSPECIFIED)
     Route: 048
     Dates: start: 20000101
  11. HYDROCHLOROTHIAZDE TAB [Concomitant]
     Indication: HYPERTENSION
     Dosage: DOSE :25
  12. MARCUMAR [Concomitant]
     Dosage: 3 MG-DEPENDING ON INR
  13. METHOTREXATE [Suspect]
  14. PREDNISOLONE [Concomitant]
  15. ALLOPURINOL [Concomitant]
  16. HYDROCHLOROTHIAZDE TAB [Concomitant]
  17. TORSEMIDE [Concomitant]
  18. FLECAINIDE ACETATE [Concomitant]
  19. MARCUMAR [Concomitant]
     Dosage: UNKNOWN DOSE
  20. PANTOPRAZOLE [Concomitant]

REACTIONS (2)
  - ROTATOR CUFF SYNDROME [None]
  - ISCHAEMIC STROKE [None]
